FAERS Safety Report 21348269 (Version 1)
Quarter: 2022Q3

REPORT INFORMATION
  Report Type: Report from Study
  Country: CO (occurrence: CO)
  Receive Date: 20220919
  Receipt Date: 20220919
  Transmission Date: 20221027
  Serious: Yes (Disabling)
  Sender: FDA-Public Use
  Company Number: CO-NOVARTISPH-NVSC2022CO209226

PATIENT
  Sex: Female

DRUGS (2)
  1. TASIGNA [Suspect]
     Active Substance: NILOTINIB
     Indication: Chronic myeloid leukaemia
     Dosage: 600 MG, QD
     Route: 048
  2. LOSARTAN [Suspect]
     Active Substance: LOSARTAN
     Indication: Tension
     Dosage: UNK
     Route: 065

REACTIONS (5)
  - Fall [Unknown]
  - Hip fracture [Unknown]
  - Gait disturbance [Unknown]
  - Incorrect product formulation administered [Unknown]
  - Inappropriate schedule of product administration [Unknown]
